FAERS Safety Report 7576460-4 (Version None)
Quarter: 2011Q2

REPORT INFORMATION
  Report Type: 
  Country: None (occurrence: None)
  Receive Date: 20110628
  Receipt Date: 20110615
  Transmission Date: 20111010
  Serious: Yes (Death, Other)
  Sender: FDA-Public Use
  Company Number: CA-NAPPMUNDI-CAN-2010-0001587

PATIENT
  Age: 41 Year
  Sex: Female

DRUGS (9)
  1. OXYCONTIN [Suspect]
     Dosage: 1440 MG, DAILY
  2. OXYCONTIN [Suspect]
     Indication: BACK PAIN
     Dosage: 120 MG, UNK
     Route: 065
     Dates: start: 20070101
  3. ANTIDEPRESSANTS [Suspect]
     Indication: PRODUCT USED FOR UNKNOWN INDICATION
  4. ALCOHOL [Suspect]
     Indication: PRODUCT USED FOR UNKNOWN INDICATION
     Dosage: UNK
  5. OXYCONTIN [Suspect]
     Dosage: 700 MG, DAILY
     Dates: start: 20080701
  6. ANXIOLYTICS [Suspect]
     Indication: PRODUCT USED FOR UNKNOWN INDICATION
  7. OXYCONTIN [Suspect]
     Dosage: 520 MG, DAILY
     Dates: start: 20080101
  8. OXYCONTIN [Suspect]
     Dosage: 960 MG, DAILY
     Dates: start: 20080901
  9. COCAINE [Suspect]
     Indication: PRODUCT USED FOR UNKNOWN INDICATION
     Dosage: UNK

REACTIONS (4)
  - OVERDOSE [None]
  - DRUG DEPENDENCE [None]
  - CYANOSIS [None]
  - SUBSTANCE ABUSE [None]
